FAERS Safety Report 18012541 (Version 2)
Quarter: 2020Q3

REPORT INFORMATION
  Report Type: Spontaneous
  Country: DK (occurrence: DK)
  Receive Date: 20200713
  Receipt Date: 20200715
  Transmission Date: 20201103
  Serious: Yes (Hospitalization)
  Sender: FDA-Public Use
  Company Number: DK-MYLANLABS-2020M1063015

PATIENT
  Age: 56 Year
  Sex: Female

DRUGS (4)
  1. PACLITAXEL. [Suspect]
     Active Substance: PACLITAXEL
     Indication: BREAST CANCER
     Dosage: STRENGTH: UNKNOWN 3 INFUSIONS GIVEN IN TOTAL
     Route: 042
     Dates: start: 201605, end: 201609
  2. CYCLOPHOSPHAMIDE. [Suspect]
     Active Substance: CYCLOPHOSPHAMIDE
     Indication: BREAST CANCER
     Dosage: STRENGTH: UNKNOWN, DOSAGE: 3 INFUSIONS GIVEN IN TOTAL
     Route: 042
     Dates: start: 201605, end: 201609
  3. EPIRUBICIN [Suspect]
     Active Substance: EPIRUBICIN
     Indication: BREAST CANCER
     Dosage: STRENGTH: 2 MG/ML DOSAGE: 3 INFUSIONS GIVEN IN TOTAL
     Route: 042
     Dates: start: 201605, end: 201609
  4. FURIX [Concomitant]
     Indication: DIURETIC THERAPY
     Dosage: STRENGTH: UNKNOWN DOSAGE: UNKNOWN
     Dates: start: 2016, end: 2016

REACTIONS (11)
  - Fatigue [Unknown]
  - Vomiting [Unknown]
  - Kidney enlargement [Unknown]
  - Taste disorder [Unknown]
  - Atypical haemolytic uraemic syndrome [Unknown]
  - Renal failure [Not Recovered/Not Resolved]
  - Skin discolouration [Unknown]
  - Decreased appetite [Unknown]
  - Abdominal pain [Unknown]
  - Thrombotic microangiopathy [Unknown]
  - Nausea [Unknown]

NARRATIVE: CASE EVENT DATE: 2017
